FAERS Safety Report 18255101 (Version 3)
Quarter: 2021Q1

REPORT INFORMATION
  Report Type: Report from Study
  Country: CA (occurrence: CA)
  Receive Date: 20200910
  Receipt Date: 20210219
  Transmission Date: 20210419
  Serious: Yes (Death, Life-Threatening, Hospitalization, Other)
  Sender: FDA-Public Use
  Company Number: CA-BIOGEN-2020BI00919627

PATIENT
  Age: 52 Year
  Sex: Female

DRUGS (1)
  1. TYSABRI [Suspect]
     Active Substance: NATALIZUMAB
     Indication: MULTIPLE SCLEROSIS
     Dosage: INFUSED OVER 1 HOUR
     Route: 042
     Dates: start: 20200611, end: 20200806

REACTIONS (4)
  - Lung neoplasm [Unknown]
  - Tumour haemorrhage [Unknown]
  - Pleural effusion [Unknown]
  - Malignant melanoma [Fatal]

NARRATIVE: CASE EVENT DATE: 20201017
